FAERS Safety Report 24646674 (Version 1)
Quarter: 2024Q4

REPORT INFORMATION
  Report Type: Spontaneous
  Country: CH (occurrence: CH)
  Receive Date: 20241121
  Receipt Date: 20241121
  Transmission Date: 20250114
  Serious: Yes (Hospitalization)
  Sender: Unknown Manufacturer
  Company Number: None

PATIENT

DRUGS (1)
  1. METOPROLOL SUCCINATE [Suspect]
     Active Substance: METOPROLOL SUCCINATE
     Indication: Heart failure with midrange ejection fraction
     Dosage: 37.5 MILLIGRAM, QD (1-0-0.5, MEDICAL HISTORY SINCE AT LEAST 2016, INITIAL DOSE AND POSSIBLE DOSE ADJ
     Dates: start: 2016

REACTIONS (1)
  - Chronotropic incompetence [Unknown]

NARRATIVE: CASE EVENT DATE: 20240101
